FAERS Safety Report 7358982-4 (Version None)
Quarter: 2011Q1

REPORT INFORMATION
  Report Type: 
  Country: None (occurrence: None)
  Receive Date: 20110317
  Receipt Date: 20100927
  Transmission Date: 20110831
  Serious: Yes (Other)
  Sender: FDA-Public Use
  Company Number: US-BAYER-200935851NA

PATIENT
  Sex: Female
  Weight: 54.422 kg

DRUGS (9)
  1. YASMIN [Suspect]
     Indication: PREMENSTRUAL SYNDROME
     Dosage: UNK
     Dates: start: 20060101
  2. YAZ [Suspect]
     Indication: CONTRACEPTION
  3. LEXAPRO [Concomitant]
  4. UNCODEABLE ^UNCLASSIFIABLE^ [Concomitant]
  5. YASMIN [Suspect]
     Indication: CONTRACEPTION
  6. CLONOPIN [Concomitant]
  7. MEDROXYPROGESTERONE [Concomitant]
  8. SUCRALFATE [Concomitant]
  9. YAZ [Suspect]
     Indication: PREMENSTRUAL SYNDROME
     Dosage: UNK
     Dates: start: 20050101, end: 20060101

REACTIONS (2)
  - GALLBLADDER INJURY [None]
  - CHOLECYSTITIS CHRONIC [None]
